FAERS Safety Report 8987649 (Version 1)
Quarter: 2012Q4

REPORT INFORMATION
  Report Type: 
  Country: FR (occurrence: FR)
  Receive Date: 20121227
  Receipt Date: 20121227
  Transmission Date: 20130627
  Serious: Yes (Hospitalization)
  Sender: FDA-Public Use
  Company Number: FR-ASTRAZENECA-2012SE94818

PATIENT
  Age: 66 Year
  Sex: Male

DRUGS (5)
  1. PROPOFOL [Suspect]
     Indication: GENERAL ANAESTHESIA
     Route: 042
  2. SUFENTANIL [Suspect]
     Indication: GENERAL ANAESTHESIA
     Route: 042
  3. NITROUS OXIDE [Concomitant]
     Indication: MAINTENANCE OF ANAESTHESIA
  4. OXYGEN [Concomitant]
     Indication: MAINTENANCE OF ANAESTHESIA
  5. SEVOFLURANE [Concomitant]
     Indication: MAINTENANCE OF ANAESTHESIA

REACTIONS (1)
  - VIIth nerve paralysis [Not Recovered/Not Resolved]
